FAERS Safety Report 13821198 (Version 1)
Quarter: 2017Q3

REPORT INFORMATION
  Report Type: Report from Study
  Country: CZ (occurrence: CZ)
  Receive Date: 20170801
  Receipt Date: 20170801
  Transmission Date: 20171127
  Serious: Yes (Life-Threatening)
  Sender: FDA-Public Use
  Company Number: CZ-PACIRA PHARMACEUTICALS, INC.-2017DEPCZ00746

PATIENT
  Age: 4 Year
  Sex: Male
  Weight: 19.7 kg

DRUGS (18)
  1. ETOPOSIDE. [Concomitant]
     Active Substance: ETOPOSIDE
     Indication: MEDULLOBLASTOMA
     Dosage: ^5X0.5MG^
     Route: 037
     Dates: start: 20170622
  2. FORTECORTIN [Concomitant]
     Active Substance: DEXAMETHASONE
     Indication: PRODUCT USED FOR UNKNOWN INDICATION
     Dosage: 2 MG, TID
     Route: 048
     Dates: start: 20170601
  3. ETOPOSIDE. [Concomitant]
     Active Substance: ETOPOSIDE
     Indication: MEDULLOBLASTOMA
     Dosage: 20 MG, DAILY
     Route: 048
     Dates: start: 20170525, end: 20170614
  4. BEVACIZUMAB. [Concomitant]
     Active Substance: BEVACIZUMAB
     Dosage: 180MG EVERY 2 WEEKS
     Route: 065
     Dates: start: 20170707
  5. ENAP [Concomitant]
     Active Substance: ENALAPRIL
     Indication: PRODUCT USED FOR UNKNOWN INDICATION
     Dosage: 2.5MG-5MG-15MG DAILY
     Route: 048
     Dates: start: 20170513
  6. LOMIR [Concomitant]
     Indication: PRODUCT USED FOR UNKNOWN INDICATION
     Dosage: 5 MG, BID
     Route: 048
     Dates: start: 20170602
  7. DEPOCYT [Suspect]
     Active Substance: CYTARABINE
     Indication: MEDULLOBLASTOMA RECURRENT
     Dosage: 35 MG INTRATHECAL VIA OMAYA, ALTERATION WITH ETO INTRATHECAL  1:3
     Route: 037
     Dates: start: 201703, end: 20170707
  8. SUMETROLIM [Concomitant]
     Indication: PRODUCT USED FOR UNKNOWN INDICATION
     Dosage: 400MG/80MG MONDAY, TUESDAY
     Route: 048
     Dates: start: 20160412
  9. THIAMIN [Concomitant]
     Active Substance: THIAMINE
     Indication: PRODUCT USED FOR UNKNOWN INDICATION
     Dosage: 100 MG, DAILY
     Route: 048
     Dates: start: 20160921
  10. HELICID [Concomitant]
     Indication: PRODUCT USED FOR UNKNOWN INDICATION
     Dosage: 20-10MG ORAL, INTRAVENOUS (TOGETHER WITH CORTICOSTEROIDS)
  11. VIGANTOL [Concomitant]
     Active Substance: CHOLECALCIFEROL
     Indication: PRODUCT USED FOR UNKNOWN INDICATION
     Dosage: 2GTT DAILY
     Route: 048
     Dates: start: 20160420
  12. CELECOXIB. [Concomitant]
     Active Substance: CELECOXIB
     Indication: MEDULLOBLASTOMA
     Dosage: 200 MG, DAILY
  13. THALIDOMID [Concomitant]
     Active Substance: THALIDOMIDE
     Dosage: 40 MG, DAILY
  14. FENOFIBRATE. [Concomitant]
     Active Substance: FENOFIBRATE
     Indication: MEDULLOBLASTOMA
     Dosage: 60 MG, DAILY
     Route: 065
  15. CYCLOPHOSPHAMIDE. [Concomitant]
     Active Substance: CYCLOPHOSPHAMIDE
     Indication: MEDULLOBLASTOMA
     Dosage: 10 MG, DAILY
     Route: 065
     Dates: start: 20170630
  16. PYRIDOXIN [Concomitant]
     Active Substance: PYRIDOXINE
     Indication: PRODUCT USED FOR UNKNOWN INDICATION
     Dosage: 40 MG, DAILY
     Route: 048
     Dates: start: 20160921
  17. DEXONA [Concomitant]
     Active Substance: DEXAMETHASONE
     Indication: PRODUCT USED FOR UNKNOWN INDICATION
     Dosage: 4 MG, Q6H
     Route: 042
     Dates: start: 20170713
  18. EUTHYROX [Concomitant]
     Active Substance: LEVOTHYROXINE SODIUM
     Indication: PRODUCT USED FOR UNKNOWN INDICATION
     Dosage: 12.5 MCG DAILY
     Route: 048
     Dates: start: 20170513

REACTIONS (3)
  - Arachnoiditis [Recovered/Resolved]
  - Respiratory failure [Recovered/Resolved]
  - Pneumonia [Recovered/Resolved]

NARRATIVE: CASE EVENT DATE: 20170713
